FAERS Safety Report 8936511 (Version 1)
Quarter: 2012Q4

REPORT INFORMATION
  Report Type: 
  Country: CZ (occurrence: CZ)
  Receive Date: 20121130
  Receipt Date: 20121130
  Transmission Date: 20130627
  Serious: Yes (Hospitalization)
  Sender: FDA-Public Use
  Company Number: CZ-JNJFOC-20121111533

PATIENT
  Age: 62 Year
  Sex: Female

DRUGS (4)
  1. REMICADE [Suspect]
     Indication: RHEUMATOID ARTHRITIS
     Route: 042
     Dates: start: 20120510, end: 20120621
  2. LEFLUNOMID [Concomitant]
     Route: 065
  3. LUSOPRESS [Concomitant]
     Route: 065
  4. DHC [Concomitant]
     Route: 065

REACTIONS (2)
  - Respiratory failure [Recovered/Resolved]
  - Chlamydial infection [Recovered/Resolved]
